FAERS Safety Report 6927959-2 (Version None)
Quarter: 2010Q3

REPORT INFORMATION
  Report Type: 
  Country: None (occurrence: None)
  Receive Date: 20100817
  Receipt Date: 20100809
  Transmission Date: 20110219
  Serious: Yes (Other)
  Sender: FDA-Public Use
  Company Number: TR-ELI_LILLY_AND_COMPANY-TR201008002528

PATIENT
  Sex: Female

DRUGS (6)
  1. HUMULIN R [Suspect]
     Indication: GESTATIONAL DIABETES
     Dosage: 16 U, EACH MORNING
     Route: 058
  2. HUMULIN R [Suspect]
     Dosage: 8 U, NOON
     Route: 058
  3. HUMULIN R [Suspect]
     Dosage: 8 U, EACH EVENING
     Route: 058
  4. HUMULIN N [Suspect]
     Dosage: 12 U, DAILY (1/D)
     Route: 058
  5. FERRO SANOL [Concomitant]
     Indication: MINERAL SUPPLEMENTATION
     Dosage: UNK, DAILY (1/D)
     Route: 048
  6. MAGNESIUM-DIASPORAL [Concomitant]
     Indication: MUSCLE SPASMS
     Dosage: UNK UNK, DAILY (1/D)
     Route: 048

REACTIONS (2)
  - ABORTION THREATENED [None]
  - DRUG EXPOSURE DURING PREGNANCY [None]
